FAERS Safety Report 4805977-8 (Version None)
Quarter: 2005Q4

REPORT INFORMATION
  Report Type: 
  Country: None (occurrence: None)
  Receive Date: 20051019
  Receipt Date: 20051019
  Transmission Date: 20060501
  Serious: Yes (Hospitalization)
  Sender: FDA-Public Use
  Company Number: None

PATIENT
  Age: 55 Year
  Sex: Male

DRUGS (12)
  1. ZOCOR [Suspect]
     Indication: HYPERLIPIDAEMIA
     Dosage: 80 MG PO QHS
     Route: 048
  2. LOPID [Concomitant]
  3. ADVAIR DISKUS 100/50 [Concomitant]
  4. LEXAPRO [Concomitant]
  5. FLOMAX [Concomitant]
  6. LISINOPRIL [Concomitant]
  7. ZANTAC [Concomitant]
  8. MULTIVIT [Concomitant]
  9. DEPAKOTE [Concomitant]
  10. ASPIRIN [Concomitant]
  11. IBUPROFEN [Concomitant]
  12. LORATADINE [Concomitant]

REACTIONS (2)
  - POLYMYOSITIS [None]
  - RHABDOMYOLYSIS [None]
